FAERS Safety Report 7368886-9 (Version None)
Quarter: 2011Q1

REPORT INFORMATION
  Report Type: 
  Country: None (occurrence: None)
  Receive Date: 20110307
  Receipt Date: 20110222
  Transmission Date: 20110831
  Serious: Yes (Other)
  Sender: FDA-Public Use
  Company Number: DSA_45060_2011

PATIENT
  Age: 68 Year
  Sex: Male
  Weight: 149.9 kg

DRUGS (5)
  1. NIFEDIPINE [Suspect]
     Indication: HYPERTENSION
     Dosage: (30 MG QD ORAL)
     Route: 048
     Dates: start: 20100101, end: 20100101
  2. PROCARDIA [Suspect]
     Indication: HYPERTENSION
     Dosage: (30 MG QD ORAL) ; (30 MG QD ORAL)
     Route: 048
     Dates: start: 20100101
  3. PROCARDIA [Suspect]
     Indication: HYPERTENSION
     Dosage: (30 MG QD ORAL) ; (30 MG QD ORAL)
     Route: 048
     Dates: start: 19920401, end: 20070101
  4. LUMIGAN [Concomitant]
  5. VITAMINS NOS [Concomitant]

REACTIONS (5)
  - DIABETES MELLITUS [None]
  - BLOOD PRESSURE DECREASED [None]
  - WEIGHT DECREASED [None]
  - UNEVALUABLE EVENT [None]
  - DIZZINESS [None]
